FAERS Safety Report 12709009 (Version 1)
Quarter: 2016Q3

REPORT INFORMATION
  Report Type: Report from Study
  Country: CO (occurrence: CO)
  Receive Date: 20160901
  Receipt Date: 20160901
  Transmission Date: 20161109
  Serious: Yes (Hospitalization)
  Sender: FDA-Public Use
  Company Number: CO-ABBVIE-16K-036-1714906-00

PATIENT
  Age: 85 Year
  Sex: Female
  Weight: 43 kg

DRUGS (1)
  1. HUMIRA [Suspect]
     Active Substance: ADALIMUMAB
     Indication: RHEUMATOID ARTHRITIS
     Route: 058
     Dates: start: 20090326, end: 20160803

REACTIONS (1)
  - Varicose ulceration [Recovering/Resolving]

NARRATIVE: CASE EVENT DATE: 20160805
